FAERS Safety Report 8015016-6 (Version None)
Quarter: 2011Q4

REPORT INFORMATION
  Report Type: 
  Country: None (occurrence: None)
  Receive Date: 20111230
  Receipt Date: 20111222
  Transmission Date: 20120403
  Serious: Yes (Hospitalization)
  Sender: FDA-Public Use
  Company Number: US-BIOGENIDEC-2011BI048625

PATIENT
  Age: 61 Year
  Sex: Female

DRUGS (3)
  1. GABAPENTIN [Concomitant]
     Indication: TRIGEMINAL NEURALGIA
  2. DYAZIDE [Concomitant]
     Indication: DIURETIC THERAPY
  3. AVONEX [Suspect]
     Indication: MULTIPLE SCLEROSIS
     Route: 030
     Dates: start: 20110201

REACTIONS (7)
  - OEDEMA PERIPHERAL [None]
  - BLOOD CALCIUM DECREASED [None]
  - BLOOD POTASSIUM DECREASED [None]
  - APHAGIA [None]
  - TRIGEMINAL NEURALGIA [None]
  - FIBROMYALGIA [None]
  - DYSKINESIA [None]
